FAERS Safety Report 16141524 (Version 3)
Quarter: 2019Q2

REPORT INFORMATION
  Report Type: Report from Study
  Country: BR (occurrence: BR)
  Receive Date: 20190401
  Receipt Date: 20190503
  Transmission Date: 20190711
  Serious: Yes (Death, Life-Threatening, Hospitalization)
  Sender: FDA-Public Use
  Company Number: BR-B.I. PHARMACEUTICALS,INC./RIDGEFIELD-2019-BI-014318

PATIENT
  Age: 76 Year
  Sex: Male
  Weight: 73 kg

DRUGS (1)
  1. OFEV [Suspect]
     Active Substance: NINTEDANIB
     Indication: IDIOPATHIC PULMONARY FIBROSIS
     Route: 048
     Dates: start: 201806, end: 20190314

REACTIONS (6)
  - Sputum increased [Unknown]
  - Dyspnoea [Unknown]
  - Idiopathic pulmonary fibrosis [Unknown]
  - Respiratory failure [Fatal]
  - Drug ineffective [Unknown]
  - Cough [Unknown]

NARRATIVE: CASE EVENT DATE: 20190305
